FAERS Safety Report 10244626 (Version 2)
Quarter: 2014Q2

REPORT INFORMATION
  Report Type: Spontaneous
  Country: US (occurrence: US)
  Receive Date: 20140618
  Receipt Date: 20140618
  Transmission Date: 20141212
  Serious: No
  Sender: FDA-Public Use
  Company Number: US-ASTRAZENECA-2014SE23719

PATIENT
  Age: 20439 Day
  Sex: Male
  Weight: 72.6 kg

DRUGS (1)
  1. SYMBICORT [Suspect]
     Indication: CHRONIC OBSTRUCTIVE PULMONARY DISEASE
     Dosage: 160/4.5, 2 PUFFS BID
     Route: 055
     Dates: start: 201312

REACTIONS (4)
  - Lower respiratory tract infection [Unknown]
  - Nasopharyngitis [Unknown]
  - Sinusitis [Unknown]
  - Intentional product misuse [Unknown]
